FAERS Safety Report 10085381 (Version 2)
Quarter: 2014Q2

REPORT INFORMATION
  Report Type: Spontaneous
  Country: US (occurrence: US)
  Receive Date: 20140418
  Receipt Date: 20140529
  Transmission Date: 20141212
  Serious: No
  Sender: FDA-Public Use
  Company Number: US-009507513-1404USA009679

PATIENT
  Age: 34 Year
  Sex: Male
  Weight: 99.77 kg

DRUGS (4)
  1. PEGINTRON [Suspect]
     Dosage: 150 MICROGRAM/0.5ML, QW
     Route: 058
  2. REBETOL [Suspect]
     Route: 048
  3. GABAPENTIN [Concomitant]
     Route: 048
  4. SOVALDI [Concomitant]
     Route: 048

REACTIONS (6)
  - Influenza like illness [Not Recovered/Not Resolved]
  - Headache [Unknown]
  - Pyrexia [Unknown]
  - Chills [Unknown]
  - Fatigue [Not Recovered/Not Resolved]
  - Dysgeusia [Unknown]
